FAERS Safety Report 9639461 (Version 1)
Quarter: 2013Q4

REPORT INFORMATION
  Report Type: Spontaneous
  Country: CA (occurrence: CA)
  Receive Date: 20131022
  Receipt Date: 20131022
  Transmission Date: 20140711
  Serious: Yes (Other)
  Sender: FDA-Public Use
  Company Number: CA-AMGEN-CANSP2013073234

PATIENT
  Age: 75 Year
  Sex: Female

DRUGS (1)
  1. PROLIA [Suspect]
     Indication: OSTEOPOROSIS POSTMENOPAUSAL
     Dosage: UNK
     Route: 065
     Dates: start: 20131009

REACTIONS (6)
  - Dyspnoea [Not Recovered/Not Resolved]
  - Oedema mouth [Not Recovered/Not Resolved]
  - Abdominal pain upper [Unknown]
  - Pruritus [Unknown]
  - Back pain [Unknown]
  - Drug hypersensitivity [Unknown]
